FAERS Safety Report 11026340 (Version 1)
Quarter: 2015Q2

REPORT INFORMATION
  Report Type: Report from Study
  Country: IE (occurrence: IE)
  Receive Date: 20150414
  Receipt Date: 20150414
  Transmission Date: 20150821
  Serious: Yes (Life-Threatening, Hospitalization, Other)
  Sender: FDA-Public Use
  Company Number: IE-ABBVIE-15K-229-1367845-00

PATIENT
  Sex: Male

DRUGS (1)
  1. HUMIRA [Suspect]
     Active Substance: ADALIMUMAB
     Indication: PRODUCT USED FOR UNKNOWN INDICATION
     Route: 058

REACTIONS (7)
  - Lower respiratory tract infection [Unknown]
  - Unevaluable event [Unknown]
  - Abasia [Unknown]
  - Adverse drug reaction [Unknown]
  - Stress [Unknown]
  - Joint range of motion decreased [Unknown]
  - Arthralgia [Unknown]
